FAERS Safety Report 8138708-7 (Version None)
Quarter: 2012Q1

REPORT INFORMATION
  Report Type: 
  Country: None (occurrence: None)
  Receive Date: 20120215
  Receipt Date: 20120209
  Transmission Date: 20120608
  Serious: Yes (Hospitalization)
  Sender: FDA-Public Use
  Company Number: US-GLAXOSMITHKLINE-A0905877A

PATIENT
  Age: 68 Year
  Sex: Male
  Weight: 87.7 kg

DRUGS (6)
  1. VIAGRA [Concomitant]
  2. AVANDIA [Suspect]
     Indication: DIABETES MELLITUS
     Dosage: 8MG PER DAY
     Route: 048
     Dates: start: 20050201, end: 20081201
  3. OMEPRAZOLE [Concomitant]
  4. METOPROLOL TARTRATE [Concomitant]
  5. MEVACOR [Concomitant]
  6. IMITREX [Concomitant]

REACTIONS (2)
  - MYOCARDIAL INFARCTION [None]
  - STENT PLACEMENT [None]
